FAERS Safety Report 7828571-3 (Version None)
Quarter: 2011Q4

REPORT INFORMATION
  Report Type: 
  Country: None (occurrence: None)
  Receive Date: 20111020
  Receipt Date: 20111020
  Transmission Date: 20120403
  Serious: Yes (Other)
  Sender: FDA-Public Use
  Company Number: None

PATIENT
  Age: 69 Year
  Sex: Male
  Weight: 92.079 kg

DRUGS (1)
  1. HEART FACTOR PLUS [Suspect]
     Indication: BLOOD PRESSURE DECREASED
     Dosage: 2 CAPS
     Route: 048
     Dates: start: 20111005, end: 20111012

REACTIONS (2)
  - DRUG INEFFECTIVE [None]
  - EPISTAXIS [None]
